FAERS Safety Report 16178123 (Version 1)
Quarter: 2019Q2

REPORT INFORMATION
  Report Type: Spontaneous
  Country: US (occurrence: US)
  Receive Date: 20190410
  Receipt Date: 20190410
  Transmission Date: 20190711
  Serious: No
  Sender: FDA-Public Use
  Company Number: US-GLENMARK PHARMACEUTICALS-2019GMK039737

PATIENT

DRUGS (1)
  1. MOMETASONE FUROATE OINTMENT USP, 0.1% [Suspect]
     Active Substance: MOMETASONE FUROATE
     Indication: DERMATITIS CONTACT
     Dosage: UNK
     Route: 065

REACTIONS (3)
  - Eyelid irritation [Not Recovered/Not Resolved]
  - Product use issue [Unknown]
  - Swelling of eyelid [Not Recovered/Not Resolved]
